FAERS Safety Report 6180047-8 (Version None)
Quarter: 2009Q2

REPORT INFORMATION
  Report Type: 
  Country: None (occurrence: None)
  Receive Date: 20090501
  Receipt Date: 20090424
  Transmission Date: 20091009
  Serious: Yes (Hospitalization)
  Sender: FDA-Public Use
  Company Number: DSA_33562_2009

PATIENT
  Sex: Female

DRUGS (6)
  1. XENAZINE [Suspect]
     Indication: HUNTINGTON'S CHOREA
     Dosage: (37.5 MG TID)
     Dates: start: 20090106
  2. PROZAC [Concomitant]
  3. DETROL [Concomitant]
  4. WELLBUTRIN [Concomitant]
  5. ASPIRIN [Concomitant]
  6. KLONOPIN [Concomitant]

REACTIONS (1)
  - LIVER DISORDER [None]
